FAERS Safety Report 8280585-8 (Version None)
Quarter: 2012Q2

REPORT INFORMATION
  Report Type: 
  Country: None (occurrence: None)
  Receive Date: 20120412
  Receipt Date: 20120125
  Transmission Date: 20120825
  Serious: No
  Sender: FDA-Public Use
  Company Number: US-ASTRAZENECA-2010SE57360

PATIENT
  Age: 70 Year
  Sex: Female

DRUGS (2)
  1. NEXIUM [Suspect]
     Route: 048
  2. ANTIBIOTIC [Suspect]
     Route: 065

REACTIONS (8)
  - ADVERSE DRUG REACTION [None]
  - AMNESIA [None]
  - FEELING ABNORMAL [None]
  - PNEUMONIA [None]
  - SINUSITIS [None]
  - HYPERSENSITIVITY [None]
  - ARTHRITIS [None]
  - MALAISE [None]
